FAERS Safety Report 11126815 (Version 1)
Quarter: 2015Q2

REPORT INFORMATION
  Report Type: Spontaneous
  Country: US (occurrence: US)
  Receive Date: 20150520
  Receipt Date: 20150520
  Transmission Date: 20150821
  Serious: No
  Sender: FDA-Public Use
  Company Number: US-B.I. PHARMACEUTICALS,INC./RIDGEFIELD-2015-BI-25348BP

PATIENT
  Age: 54 Year
  Sex: Male
  Weight: 95 kg

DRUGS (2)
  1. TYLENOL PM [Concomitant]
     Active Substance: ACETAMINOPHEN\DIPHENHYDRAMINE
     Indication: MYALGIA
     Dosage: FORMULATION: CAPLET
     Route: 048
     Dates: start: 20150509
  2. COMBIVENT [Suspect]
     Active Substance: ALBUTEROL SULFATE\IPRATROPIUM BROMIDE
     Indication: CHRONIC OBSTRUCTIVE PULMONARY DISEASE
     Dosage: DOSE PER APPLICATION: 20 MCG /100 MCG; DAILY DOSE: 80MCG/400MCG
     Route: 055
     Dates: start: 201405

REACTIONS (3)
  - Nervousness [Recovered/Resolved]
  - Feeling jittery [Recovered/Resolved]
  - Restlessness [Recovered/Resolved]

NARRATIVE: CASE EVENT DATE: 20150509
